FAERS Safety Report 19664753 (Version 1)
Quarter: 2021Q3

REPORT INFORMATION
  Report Type: Spontaneous
  Country: DE (occurrence: DE)
  Receive Date: 20210806
  Receipt Date: 20210806
  Transmission Date: 20211014
  Serious: Yes (Other)
  Sender: FDA-Public Use
  Company Number: DE-AUROBINDO-AUR-APL-2021-033664

PATIENT
  Age: 21 Year
  Sex: Male

DRUGS (11)
  1. TROFOSFAMIDE [Suspect]
     Active Substance: TROFOSFAMIDE
     Indication: HODGKIN^S DISEASE
     Dosage: 50 MILLIGRAM, ONCE A DAY
     Route: 065
  2. ETORICOXIB FILM COATED TABLET [Suspect]
     Active Substance: ETORICOXIB
     Indication: OFF LABEL USE
  3. PIOGLITAZONE. [Suspect]
     Active Substance: PIOGLITAZONE
     Indication: OFF LABEL USE
  4. DEXAMETHASONE. [Suspect]
     Active Substance: DEXAMETHASONE
     Indication: OFF LABEL USE
  5. DEXAMETHASONE. [Suspect]
     Active Substance: DEXAMETHASONE
     Indication: HODGKIN^S DISEASE
  6. ETORICOXIB FILM COATED TABLET [Suspect]
     Active Substance: ETORICOXIB
     Indication: HODGKIN^S DISEASE
     Dosage: 60 MILLIGRAM, ONCE A DAY
     Route: 048
  7. EVEROLIMUS. [Suspect]
     Active Substance: EVEROLIMUS
     Indication: HODGKIN^S DISEASE
     Dosage: 15 MILLIGRAM, ONCE A DAY
     Route: 048
  8. PIOGLITAZONE. [Suspect]
     Active Substance: PIOGLITAZONE
     Indication: HODGKIN^S DISEASE
     Dosage: 45 MILLIGRAM, ONCE A DAY
     Route: 048
  9. EVEROLIMUS. [Suspect]
     Active Substance: EVEROLIMUS
     Indication: OFF LABEL USE
  10. TROFOSFAMIDE [Suspect]
     Active Substance: TROFOSFAMIDE
     Indication: OFF LABEL USE
  11. DEXAMETHASONE. [Suspect]
     Active Substance: DEXAMETHASONE
     Indication: HODGKIN^S DISEASE
     Dosage: 0.5 MILLIGRAM, ONCE A DAY
     Route: 048

REACTIONS (5)
  - Sinusitis [Unknown]
  - Off label use [Unknown]
  - Haematotoxicity [Unknown]
  - Product use in unapproved indication [Unknown]
  - Pneumonia bacterial [Unknown]
